FAERS Safety Report 8761920 (Version 1)
Quarter: 2012Q4

REPORT INFORMATION
  Report Type: 
  Country: VE (occurrence: VE)
  Receive Date: 20120830
  Receipt Date: 20120830
  Transmission Date: 20130627
  Serious: Yes (Death, Other)
  Sender: FDA-Public Use
  Company Number: VE-PFIZER INC-2012210990

PATIENT
  Sex: Male

DRUGS (1)
  1. LYRICA [Suspect]
     Dosage: 150 mg, 1x/day
     Route: 048

REACTIONS (2)
  - Respiratory arrest [Fatal]
  - Neoplasm malignant [Not Recovered/Not Resolved]
